FAERS Safety Report 22265035 (Version 1)
Quarter: 2023Q2

REPORT INFORMATION
  Report Type: Spontaneous
  Country: CN (occurrence: CN)
  Receive Date: 20230428
  Receipt Date: 20230428
  Transmission Date: 20230722
  Serious: Yes (Hospitalization)
  Sender: FDA-Public Use
  Company Number: CN-009507513-2304CHN009701

PATIENT
  Age: 48 Year
  Sex: Male

DRUGS (2)
  1. KEYTRUDA [Suspect]
     Active Substance: PEMBROLIZUMAB
     Indication: Lung adenocarcinoma
     Dosage: 200 MG, EVERY 3 WEEKS (Q3W) (D1)
     Route: 041
     Dates: start: 20230317, end: 20230317
  2. CELEBREX [Concomitant]
     Active Substance: CELECOXIB
     Indication: Symptomatic treatment
     Dosage: 200MG, ONCE (1/DAY)
     Route: 048
     Dates: start: 20230317, end: 20230317

REACTIONS (6)
  - Alanine aminotransferase increased [Unknown]
  - Aspartate aminotransferase increased [Unknown]
  - Chest discomfort [Unknown]
  - Chest pain [Unknown]
  - Blood bilirubin abnormal [Unknown]
  - Bilirubin conjugated abnormal [Unknown]

NARRATIVE: CASE EVENT DATE: 20230322
